FAERS Safety Report 11839575 (Version 4)
Quarter: 2016Q1

REPORT INFORMATION
  Report Type: Spontaneous
  Country: US (occurrence: US)
  Receive Date: 20151216
  Receipt Date: 20160223
  Transmission Date: 20160525
  Serious: No
  Sender: FDA-Public Use
  Company Number: US-ASTRAZENECA-2015SF22155

PATIENT
  Sex: Male

DRUGS (1)
  1. BRILINTA [Suspect]
     Active Substance: TICAGRELOR
     Indication: ACUTE CORONARY SYNDROME
     Route: 048

REACTIONS (7)
  - Coeliac disease [Unknown]
  - Contusion [Recovering/Resolving]
  - Fatigue [Unknown]
  - Asthma [Unknown]
  - Back disorder [Unknown]
  - Application site discomfort [Unknown]
  - Dyspnoea [Unknown]
